FAERS Safety Report 8501618-7 (Version None)
Quarter: 2012Q3

REPORT INFORMATION
  Report Type: 
  Country: None (occurrence: None)
  Receive Date: 20120710
  Receipt Date: 20120625
  Transmission Date: 20120928
  Serious: Yes (Other)
  Sender: FDA-Public Use
  Company Number: CHPA2012US014043

PATIENT
  Age: 80 Year
  Sex: Female

DRUGS (4)
  1. EXCEDRIN PM CAPLETS [Suspect]
     Indication: INSOMNIA
     Dosage: UNK, UNK
     Route: 048
  2. MELATONIN [Concomitant]
     Dosage: UNK, UNK
     Route: 048
     Dates: start: 20120601, end: 20120601
  3. EXCEDRIN (MIGRAINE) [Suspect]
     Indication: INSOMNIA
     Dosage: 2 DF, UNK
     Route: 048
     Dates: start: 20120624
  4. EXCEDRIN (MIGRAINE) [Suspect]
     Dosage: UNK, UNK
     Route: 048

REACTIONS (5)
  - TENDONITIS [None]
  - NECK PAIN [None]
  - MUSCULOSKELETAL PAIN [None]
  - BURSITIS [None]
  - HEADACHE [None]
